FAERS Safety Report 8935210 (Version 1)
Quarter: 2012Q4

REPORT INFORMATION
  Report Type: Report from Study
  Country: US (occurrence: US)
  Receive Date: 20121129
  Receipt Date: 20121129
  Transmission Date: 20130627
  Serious: Yes (Life-Threatening, Hospitalization)
  Sender: FDA-Public Use
  Company Number: US-CELGENEUS-163-21660-12113039

PATIENT
  Age: 62 Year
  Sex: Female
  Weight: 86 kg

DRUGS (6)
  1. ABRAXANE [Suspect]
     Indication: BREAST CANCER
     Dosage: 198 Milligram
     Route: 041
     Dates: start: 20100216, end: 20100216
  2. ABRAXANE [Suspect]
     Dosage: 198 Milligram
     Route: 041
     Dates: start: 20100505, end: 20100505
  3. BEVACIZUMAB [Suspect]
     Indication: BREAST CANCER
     Dosage: 964 Milligram
     Route: 041
     Dates: start: 20100203, end: 20100203
  4. BEVACIZUMAB [Suspect]
     Dosage: 964 Milligram
     Route: 041
     Dates: start: 20100505, end: 20100505
  5. CARBOPLATIN [Suspect]
     Indication: BREAST CANCER
     Dosage: 930 Milligram
     Route: 041
     Dates: start: 20100216
  6. CARBOPLATIN [Suspect]
     Dosage: 930 Milligram
     Route: 041
     Dates: start: 20100428, end: 20100428

REACTIONS (8)
  - Hypokalaemia [Unknown]
  - Mental status changes [Unknown]
  - Ventricular arrhythmia [Unknown]
  - Pneumonia [Unknown]
  - Abscess [Unknown]
  - Cellulitis [Unknown]
  - Pyrexia [Recovered/Resolved]
  - Infection [Unknown]
